FAERS Safety Report 9459830 (Version 1)
Quarter: 2013Q3

REPORT INFORMATION
  Report Type: Spontaneous
  Country: US (occurrence: US)
  Receive Date: 20130815
  Receipt Date: 20130815
  Transmission Date: 20140515
  Serious: Yes (Hospitalization, Other)
  Sender: FDA-Public Use
  Company Number: US-PFIZER INC-2013236325

PATIENT
  Age: 41 Year
  Sex: Female

DRUGS (2)
  1. LYRICA [Suspect]
     Indication: FIBROMYALGIA
     Dosage: 150 MG, 2X/DAY
     Route: 048
     Dates: start: 1999
  2. NEURONTIN [Suspect]
     Dosage: UNK
     Dates: start: 2003

REACTIONS (3)
  - Transient ischaemic attack [Unknown]
  - Loss of consciousness [Unknown]
  - Speech disorder [Unknown]
